FAERS Safety Report 7814193-7 (Version None)
Quarter: 2011Q4

REPORT INFORMATION
  Report Type: 
  Country: None (occurrence: None)
  Receive Date: 20111014
  Receipt Date: 20111004
  Transmission Date: 20120403
  Serious: No
  Sender: FDA-Public Use
  Company Number: JP-MYLANLABS-2011S1020084

PATIENT
  Age: 19 Year
  Sex: Female

DRUGS (2)
  1. AMNESTEEM [Suspect]
  2. AMNESTEEM [Suspect]
     Dates: start: 20101027

REACTIONS (1)
  - PREGNANCY TEST FALSE POSITIVE [None]
